FAERS Safety Report 18399149 (Version 4)
Quarter: 2024Q4

REPORT INFORMATION
  Report Type: Spontaneous
  Country: JP (occurrence: JP)
  Receive Date: 20201019
  Receipt Date: 20241119
  Transmission Date: 20250115
  Serious: Yes (Other)
  Sender: NOVO NORDISK
  Company Number: JP-NOVOPROD-759390

PATIENT
  Age: 41 Year
  Sex: Male
  Weight: 42 kg

DRUGS (14)
  1. NOVOEIGHT [Suspect]
     Active Substance: ANTIHEMOPHILIC FACTOR, HUMAN RECOMBINANT
     Indication: Factor VIII deficiency
     Dosage: 2000IU FOUR TIMES A WEEK (IN THE MORNING)
     Route: 042
     Dates: start: 20150601
  2. NOVOEIGHT [Suspect]
     Active Substance: ANTIHEMOPHILIC FACTOR, HUMAN RECOMBINANT
     Dosage: 2000IU FOUR TIMES A WEEK (IN THE MORNING)
     Route: 042
     Dates: start: 20200921
  3. NOVOEIGHT [Suspect]
     Active Substance: ANTIHEMOPHILIC FACTOR, HUMAN RECOMBINANT
     Dosage: 2000IU FOUR TIMES A WEEK (IN THE MORNING)
     Route: 042
     Dates: start: 20200928
  4. NOVOEIGHT [Suspect]
     Active Substance: ANTIHEMOPHILIC FACTOR, HUMAN RECOMBINANT
     Dosage: 2000IU FOUR TIMES A WEEK (IN THE MORNING)
     Route: 042
     Dates: start: 20200930
  5. NOVOEIGHT [Suspect]
     Active Substance: ANTIHEMOPHILIC FACTOR, HUMAN RECOMBINANT
     Dosage: 2000IU FOUR TIMES A WEEK (IN THE MORNING)
     Route: 042
     Dates: start: 20201002
  6. NOVOEIGHT [Suspect]
     Active Substance: ANTIHEMOPHILIC FACTOR, HUMAN RECOMBINANT
     Dosage: UNK  (IN THE EVENING)
     Route: 042
     Dates: start: 20201003, end: 20201005
  7. PHENOBARBITAL [Suspect]
     Active Substance: PHENOBARBITAL
     Indication: Epilepsy
     Dosage: 110 MG
     Route: 048
  8. RETROVIR [Suspect]
     Active Substance: ZIDOVUDINE
     Indication: HIV infection
     Dosage: 400 MG
     Route: 048
  9. EPIVIR [Suspect]
     Active Substance: LAMIVUDINE
     Indication: HIV infection
     Dosage: 300 MG
     Route: 048
  10. EFAVIRENZ [Suspect]
     Active Substance: EFAVIRENZ
     Indication: HIV infection
     Dosage: 600 MG
     Route: 048
  11. GASTER [Suspect]
     Active Substance: FAMOTIDINE
     Indication: Gastric ulcer
     Dosage: 40 MG
     Route: 048
  12. NEXIUM [Suspect]
     Active Substance: ESOMEPRAZOLE MAGNESIUM
     Indication: Gastric ulcer
     Dosage: 20 MG
     Route: 048
  13. BUPRENORPHINE HYDROCHLORIDE [Suspect]
     Active Substance: BUPRENORPHINE HYDROCHLORIDE
     Indication: Osteoarthritis
     Dosage: 0.8 MG
     Route: 030
  14. BIOFERMIN [BACILLUS SUBTILIS;ENTEROCOCCUS FAECALIS;LACTOBACILLUS ACIDO [Concomitant]
     Indication: Enterocolitis
     Dosage: 3 DF
     Route: 048

REACTIONS (2)
  - Hypersensitivity [Recovering/Resolving]
  - Anaphylactic reaction [Unknown]

NARRATIVE: CASE EVENT DATE: 20200921
